FAERS Safety Report 6049983-7 (Version None)
Quarter: 2009Q1

REPORT INFORMATION
  Report Type: 
  Country: None (occurrence: None)
  Receive Date: 20090121
  Receipt Date: 20081230
  Transmission Date: 20090719
  Serious: Yes (Other)
  Sender: FDA-Public Use
  Company Number: 8040796

PATIENT
  Age: 19 Year
  Sex: Female
  Weight: 63.5 kg

DRUGS (3)
  1. XYZAL [Suspect]
     Indication: SEASONAL ALLERGY
     Dosage: 2.5 MG 1/D PO
     Route: 048
     Dates: start: 20081223, end: 20081226
  2. MINOCYCLINE HCL [Concomitant]
  3. ETHINYL ESTRADIOL W/NORGESTREL [Concomitant]

REACTIONS (5)
  - ARTHRALGIA [None]
  - OEDEMA PERIPHERAL [None]
  - PHARYNGEAL OEDEMA [None]
  - SWELLING FACE [None]
  - URTICARIA [None]
